FAERS Safety Report 9595446 (Version 1)
Quarter: 2013Q4

REPORT INFORMATION
  Report Type: Spontaneous
  Country: US (occurrence: US)
  Receive Date: 20131004
  Receipt Date: 20131004
  Transmission Date: 20140711
  Serious: Yes (Other)
  Sender: FDA-Public Use
  Company Number: US-RANBAXY-2013US-73593

PATIENT
  Age: 32 Year
  Sex: Male

DRUGS (4)
  1. PSEUDOEPHEDRINE [Suspect]
     Indication: HYPERSENSITIVITY
     Dosage: 120 MG DAILY EVERY MORNING
     Route: 065
  2. PSEUDOEPHEDRINE [Suspect]
     Indication: NASAL CONGESTION
  3. LORATADINE [Concomitant]
     Indication: HYPERSENSITIVITY
     Dosage: UNK
     Route: 065
  4. LORATADINE [Concomitant]
     Indication: NASAL CONGESTION

REACTIONS (2)
  - Depression [Recovering/Resolving]
  - Therapeutic response unexpected [Recovering/Resolving]
